FAERS Safety Report 8781939 (Version 9)
Quarter: 2022Q1

REPORT INFORMATION
  Report Type: Spontaneous
  Country: GB (occurrence: GB)
  Receive Date: 20120913
  Receipt Date: 20220330
  Transmission Date: 20220424
  Serious: Yes (Other)
  Sender: FDA-Public Use
  Company Number: GB-BRISTOL-MYERS SQUIBB COMPANY-16861130

PATIENT
  Age: 15 Year
  Sex: Female

DRUGS (10)
  1. CETIRIZINE [Interacting]
     Active Substance: CETIRIZINE HYDROCHLORIDE
     Indication: Seasonal allergy
     Dosage: UNK UNK, QD (OCCASIONAL CETIRIZINE)
     Route: 048
  2. CETIRIZINE [Interacting]
     Active Substance: CETIRIZINE HYDROCHLORIDE
     Dosage: UNK, QD (OCCASIONAL CETIRIZINE)
  3. LAMOTRIGINE [Suspect]
     Active Substance: LAMOTRIGINE
     Indication: Bipolar disorder
     Dosage: 50 MILLIGRAM, TID
     Route: 048
  4. LAMOTRIGINE [Suspect]
     Active Substance: LAMOTRIGINE
     Dosage: 150 MILLIGRAM, QD
     Route: 048
  5. LAMOTRIGINE [Suspect]
     Active Substance: LAMOTRIGINE
     Dosage: 50 MILLIGRAM, QD
     Route: 048
  6. LAMICTAL [Interacting]
     Active Substance: LAMOTRIGINE
     Indication: Bipolar disorder
     Dosage: 150 MILLIGRAM, QD(50 MG,TID)
     Route: 048
  7. LAMICTAL [Interacting]
     Active Substance: LAMOTRIGINE
     Dosage: 50 MILLIGRAM, 3 TIMES A DAY
     Route: 048
  8. ABILIFY [Interacting]
     Active Substance: ARIPIPRAZOLE
     Indication: Bipolar disorder
     Dosage: UNK
     Route: 065
  9. NEXPLANON [Interacting]
     Active Substance: ETONOGESTREL
     Indication: Contraception
     Dosage: 68 MILLIGRAM
     Route: 059
  10. ETONOGESTREL [Interacting]
     Active Substance: ETONOGESTREL
     Indication: Contraception
     Dosage: UNK

REACTIONS (8)
  - Abortion spontaneous [Unknown]
  - Drug interaction [Unknown]
  - Pregnancy on contraceptive [Recovered/Resolved]
  - Intermenstrual bleeding [Unknown]
  - Exposure during pregnancy [Recovered/Resolved]
  - Unintended pregnancy [Recovered/Resolved]
  - Pregnancy with implant contraceptive [Recovered/Resolved]
  - Maternal exposure during pregnancy [Recovered/Resolved]
